FAERS Safety Report 25539087 (Version 1)
Quarter: 2025Q3

REPORT INFORMATION
  Report Type: Spontaneous
  Country: MX (occurrence: MX)
  Receive Date: 20250710
  Receipt Date: 20250710
  Transmission Date: 20251020
  Serious: Yes (Hospitalization, Other)
  Sender: SANDOZ
  Company Number: MX-002147023-NVSC2025MX012464

PATIENT
  Age: 69 Year
  Sex: Female
  Weight: 107 kg

DRUGS (9)
  1. ANASTROZOLE [Suspect]
     Active Substance: ANASTROZOLE
     Indication: Breast cancer
     Route: 048
     Dates: start: 202404
  2. KISQALI [Suspect]
     Active Substance: RIBOCICLIB SUCCINATE
     Dosage: 3 DF, QD
     Route: 048
     Dates: start: 202404
  3. KISQALI [Suspect]
     Active Substance: RIBOCICLIB SUCCINATE
     Dosage: 3 DOSAGE FORM, QD (3 X 200MG)
     Route: 048
     Dates: start: 202503
  4. KISQALI [Suspect]
     Active Substance: RIBOCICLIB SUCCINATE
     Dosage: 3 DOSAGE FORM, QD (3 X 200MG)
     Route: 048
     Dates: start: 202505
  5. KISQALI [Suspect]
     Active Substance: RIBOCICLIB SUCCINATE
     Dosage: 3 DF, QD, (3X200MG)
     Route: 048
     Dates: start: 20240501
  6. KISQALI [Suspect]
     Active Substance: RIBOCICLIB SUCCINATE
     Indication: Breast cancer
     Route: 048
     Dates: start: 202403
  7. AMLODIPINE [Concomitant]
     Active Substance: AMLODIPINE BESYLATE
     Indication: Hypertension
     Dosage: 1 DF, QD, (1 TABLET (5 MG), QD (STARTED SEVERAL YEARS AGO)
     Route: 048
  8. CHLORTHALIDONE [Concomitant]
     Active Substance: CHLORTHALIDONE
     Indication: Hypertension
     Dosage: 1 DF, QD, (1 TABLET (50 MG), QD (STARTED SEVERAL YEARS AGO)
     Route: 048
  9. METOPROLOL [Concomitant]
     Active Substance: METOPROLOL
     Indication: Hypertension
     Dosage: 1 DF, QD,(1 TABLET (100 MG), QD (STARTED SEVERAL YEARS AGO)
     Route: 048

REACTIONS (19)
  - Metastases to central nervous system [Not Recovered/Not Resolved]
  - Pleural effusion [Recovered/Resolved]
  - Bone disorder [Not Recovered/Not Resolved]
  - Swelling face [Recovering/Resolving]
  - Swelling of eyelid [Not Recovered/Not Resolved]
  - Gastritis [Recovering/Resolving]
  - Weight decreased [Recovered/Resolved]
  - Eye inflammation [Unknown]
  - Hypersomnia [Recovering/Resolving]
  - Procedural pain [Recovering/Resolving]
  - Dizziness [Recovering/Resolving]
  - Cough [Recovered/Resolved]
  - Abdominal pain upper [Recovering/Resolving]
  - Oedema [Unknown]
  - Nausea [Recovering/Resolving]
  - Vomiting [Recovered/Resolved]
  - Decreased appetite [Recovered/Resolved]
  - Headache [Not Recovered/Not Resolved]
  - Asthenia [Recovering/Resolving]

NARRATIVE: CASE EVENT DATE: 20241208
